FAERS Safety Report 8468908-8 (Version None)
Quarter: 2012Q2

REPORT INFORMATION
  Report Type: 
  Country: None (occurrence: None)
  Receive Date: 20120620
  Receipt Date: 20120606
  Transmission Date: 20120825
  Serious: Yes (Hospitalization)
  Sender: FDA-Public Use
  Company Number: 2011AP001812

PATIENT
  Age: 43 Year
  Sex: Male

DRUGS (4)
  1. RISPERIDONE [Suspect]
     Indication: SCHIZOAFFECTIVE DISORDER BIPOLAR TYPE
     Dosage: 1 MG;BID;PO 4 MG;QD;PO
     Route: 048
  2. RISPERDAL CONSTA [Suspect]
     Indication: SCHIZOAFFECTIVE DISORDER BIPOLAR TYPE
     Dosage: 37.5 MG;QOW;IM
  3. TERBINAFINE HCL [Suspect]
     Indication: NAIL INFECTION
  4. VALPROIC ACID [Concomitant]

REACTIONS (11)
  - PERSECUTORY DELUSION [None]
  - DRUG LEVEL INCREASED [None]
  - EXTRAPYRAMIDAL DISORDER [None]
  - CONDITION AGGRAVATED [None]
  - DRUG INTERACTION [None]
  - COGNITIVE DISORDER [None]
  - FEAR OF EATING [None]
  - PSYCHOTIC DISORDER [None]
  - HALLUCINATION, AUDITORY [None]
  - THOUGHT BLOCKING [None]
  - PSYCHOMOTOR HYPERACTIVITY [None]
